FAERS Safety Report 6153448-1 (Version None)
Quarter: 2009Q2

REPORT INFORMATION
  Report Type: 
  Country: None (occurrence: None)
  Receive Date: 20090413
  Receipt Date: 20090406
  Transmission Date: 20091009
  Serious: Yes (Other)
  Sender: FDA-Public Use
  Company Number: DE-ABBOTT-09P-062-0566917-00

PATIENT
  Sex: Female

DRUGS (13)
  1. AKINETON [Suspect]
     Indication: DRUG USE FOR UNKNOWN INDICATION
     Route: 048
     Dates: start: 20080306, end: 20080619
  2. ESCITALOPRAM [Suspect]
     Indication: DRUG USE FOR UNKNOWN INDICATION
     Route: 048
     Dates: start: 20080122, end: 20080716
  3. SEROQUEL [Suspect]
     Indication: DRUG USE FOR UNKNOWN INDICATION
     Route: 048
     Dates: start: 20080312, end: 20080312
  4. SEROQUEL [Suspect]
     Route: 048
     Dates: start: 20080313, end: 20080320
  5. SEROQUEL [Suspect]
     Route: 048
     Dates: start: 20080321, end: 20080328
  6. SEROQUEL [Suspect]
     Route: 048
     Dates: start: 20080329, end: 20080330
  7. SEROQUEL [Suspect]
     Route: 048
     Dates: start: 20080331, end: 20080402
  8. SEROQUEL [Suspect]
     Route: 048
     Dates: start: 20080403, end: 20080410
  9. SEROQUEL [Suspect]
     Route: 048
     Dates: start: 20080411, end: 20080509
  10. SEROQUEL [Suspect]
     Route: 048
     Dates: start: 20080510, end: 20080526
  11. ZYPREXA [Suspect]
     Indication: DRUG USE FOR UNKNOWN INDICATION
     Route: 048
     Dates: start: 20080108, end: 20080704
  12. ZOPICLON [Concomitant]
     Indication: DRUG USE FOR UNKNOWN INDICATION
     Route: 048
     Dates: start: 20080107, end: 20080619
  13. PANTOZOL [Concomitant]
     Indication: DRUG USE FOR UNKNOWN INDICATION
     Route: 048

REACTIONS (4)
  - ARRHYTHMIA [None]
  - ATRIAL FIBRILLATION [None]
  - SUPRAVENTRICULAR EXTRASYSTOLES [None]
  - VENTRICULAR EXTRASYSTOLES [None]
